FAERS Safety Report 6469480-4 (Version None)
Quarter: 2009Q4

REPORT INFORMATION
  Report Type: 
  Country: None (occurrence: None)
  Receive Date: 20091202
  Receipt Date: 20091202
  Transmission Date: 20100525
  Serious: No
  Sender: FDA-Public Use
  Company Number: None

PATIENT
  Sex: Female
  Weight: 64.27 kg

DRUGS (3)
  1. CYCLOPHOSPHAMIDE [Suspect]
     Dosage: 1000 MG
  2. DOXORUBICIN HYDROCHLORIDE [Suspect]
     Dosage: 100 MG
  3. NEULASTA [Suspect]
     Dosage: 6 MG

REACTIONS (1)
  - FATIGUE [None]
